FAERS Safety Report 7329405-6 (Version None)
Quarter: 2011Q1

REPORT INFORMATION
  Report Type: 
  Country: None (occurrence: None)
  Receive Date: 20110225
  Receipt Date: 20110225
  Transmission Date: 20110831
  Serious: Yes (Other)
  Sender: FDA-Public Use
  Company Number: None

PATIENT
  Age: 19 Year
  Sex: Female
  Weight: 56.6996 kg

DRUGS (1)
  1. CIPROFLOXACIN [Suspect]
     Indication: URINARY TRACT INFECTION
     Dosage: 500MG QTY 14 TWICE DAILY PO
     Route: 048
     Dates: start: 20110216, end: 20110223

REACTIONS (15)
  - INSOMNIA [None]
  - ARTHRALGIA [None]
  - VOMITING [None]
  - PAIN IN EXTREMITY [None]
  - NIGHTMARE [None]
  - MUSCLE SPASMS [None]
  - TENDONITIS [None]
  - HYPOPHAGIA [None]
  - COLD SWEAT [None]
  - DRUG INEFFECTIVE [None]
  - TUNNEL VISION [None]
  - PYREXIA [None]
  - VERTIGO [None]
  - HALLUCINATION, VISUAL [None]
  - TREMOR [None]
